FAERS Safety Report 8757325 (Version 3)
Quarter: 2013Q4

REPORT INFORMATION
  Report Type: Spontaneous
  Country: DE (occurrence: DE)
  Receive Date: 20120828
  Receipt Date: 20131101
  Transmission Date: 20140711
  Serious: Yes (Life-Threatening, Hospitalization)
  Sender: FDA-Public Use
  Company Number: DE-009507513-1208DEU009767

PATIENT
  Sex: Male

DRUGS (4)
  1. PEGINTRON [Suspect]
     Indication: HEPATITIS C
     Dosage: 240 MICROGRAM QAM/360 MICROGRAM QPM
     Route: 058
     Dates: start: 20120401, end: 20120726
  2. PEGINTRON [Suspect]
     Dosage: UNK UNK, QW
     Route: 058
     Dates: start: 201202, end: 2012
  3. REBETOL [Suspect]
     Indication: HEPATITIS C
     Dosage: 1000 MG, QD
     Route: 048
  4. METHADONE HYDROCHLORIDE [Concomitant]
     Indication: PRODUCT SUBSTITUTION ISSUE
     Dosage: 6 ML, QD
     Dates: start: 201112

REACTIONS (5)
  - Psychotic disorder [Unknown]
  - Suicidal ideation [Recovered/Resolved]
  - Inappropriate schedule of drug administration [Unknown]
  - Overdose [Unknown]
  - Depression [Recovered/Resolved]
